FAERS Safety Report 8402658-9 (Version None)
Quarter: 2012Q2

REPORT INFORMATION
  Report Type: 
  Country: None (occurrence: None)
  Receive Date: 20120323
  Receipt Date: 20110105
  Transmission Date: 20120825
  Serious: Yes (Other)
  Sender: FDA-Public Use
  Company Number: 163-21880-10102455

PATIENT
  Sex: Male

DRUGS (11)
  1. ACTONEL [Concomitant]
  2. NYSTATIN [Concomitant]
  3. ZOCOR [Concomitant]
  4. REVLIMID [Suspect]
  5. EXJADE [Concomitant]
  6. VITAMIN B1 TAB [Concomitant]
  7. REVLIMID [Suspect]
     Indication: MYELODYSPLASTIC SYNDROME
     Dosage: 5 MG, 1 IN 1 D, PO
     Route: 048
     Dates: start: 20100901, end: 20100901
  8. REVLIMID [Suspect]
     Indication: MYELODYSPLASTIC SYNDROME
     Dosage: 5 MG, 1 IN 1 D, PO
     Route: 048
     Dates: start: 20100805
  9. COLACE (DOCUSATE SODIIUM) [Concomitant]
  10. SYNTROID (LEVOTHYROINE SODIUM) [Concomitant]
  11. CALCIUM CARBONATE WITH VITAMIN D [Concomitant]

REACTIONS (3)
  - MALAISE [None]
  - DISEASE PROGRESSION [None]
  - PANCYTOPENIA [None]
